FAERS Safety Report 8717434 (Version 4)
Quarter: 2013Q4

REPORT INFORMATION
  Report Type: Report from Study
  Country: US (occurrence: US)
  Receive Date: 20120810
  Receipt Date: 20131203
  Transmission Date: 20140711
  Serious: Yes (Other)
  Sender: FDA-Public Use
  Company Number: US-ELI_LILLY_AND_COMPANY-US201208000586

PATIENT
  Age: 7 Year
  Sex: Male
  Weight: 33 kg

DRUGS (4)
  1. SOMATROPIN [Suspect]
     Indication: GROWTH HORMONE DEFICIENCY
     Dosage: 1 MG, 6/W
     Route: 058
     Dates: start: 20070710, end: 20111117
  2. SOMATROPIN [Suspect]
     Dosage: 1 MG, 6/W
     Route: 058
     Dates: start: 20120726
  3. SOMATROPIN [Suspect]
     Dosage: 1 MG, 6/W
     Route: 058
     Dates: start: 201301
  4. TRILEPTAL [Concomitant]
     Indication: CONVULSION

REACTIONS (3)
  - Partial seizures [Recovered/Resolved]
  - Growth retardation [Unknown]
  - Abnormal behaviour [Unknown]
